FAERS Safety Report 7795817-X (Version None)
Quarter: 2011Q4

REPORT INFORMATION
  Report Type: 
  Country: None (occurrence: None)
  Receive Date: 20111004
  Receipt Date: 20110929
  Transmission Date: 20120403
  Serious: Yes (Hospitalization, Other)
  Sender: FDA-Public Use
  Company Number: BR-ABBOTT-09P-020-0598268-00

PATIENT
  Sex: Female
  Weight: 72 kg

DRUGS (7)
  1. HUMIRA [Suspect]
     Dates: end: 20091201
  2. HUMIRA [Suspect]
     Dates: start: 20100101, end: 20100801
  3. CLORANA [Concomitant]
     Indication: HYPERTENSION
     Route: 048
     Dates: end: 20090919
  4. PRESSAT [Concomitant]
  5. PRESSAT [Concomitant]
     Indication: HYPERTENSION
     Route: 048
     Dates: end: 20090919
  6. HUMIRA [Suspect]
     Indication: RHEUMATOID ARTHRITIS
     Route: 058
     Dates: start: 20080401, end: 20090901
  7. METHOTREXATE [Concomitant]
     Indication: RHEUMATOID ARTHRITIS
     Route: 048
     Dates: start: 19990101

REACTIONS (6)
  - RHEUMATOID ARTHRITIS [None]
  - INCISION SITE INFECTION [None]
  - BLOOD CHOLESTEROL INCREASED [None]
  - BLOOD PRESSURE DECREASED [None]
  - INCISION SITE OEDEMA [None]
  - INCISION SITE PAIN [None]
